FAERS Safety Report 16177471 (Version 1)
Quarter: 2019Q2

REPORT INFORMATION
  Report Type: Spontaneous
  Country: US (occurrence: US)
  Receive Date: 20190410
  Receipt Date: 20190410
  Transmission Date: 20190711
  Serious: Yes (Hospitalization, Other)
  Sender: FDA-Public Use
  Company Number: US-DRREDDYS-USA/USA/19/0109318

PATIENT
  Age: 8 Month
  Sex: Male

DRUGS (7)
  1. TACROLIMUS. [Suspect]
     Active Substance: TACROLIMUS
     Indication: IMMUNOSUPPRESSION
  2. FLUDARABINE [Suspect]
     Active Substance: FLUDARABINE PHOSPHATE
     Indication: KRABBE^S DISEASE
  3. MELPHALAN. [Suspect]
     Active Substance: MELPHALAN
     Indication: KRABBE^S DISEASE
  4. THIOTEPA. [Suspect]
     Active Substance: THIOTEPA
     Indication: KRABBE^S DISEASE
  5. HYDROXYUREA. [Suspect]
     Active Substance: HYDROXYUREA
     Indication: KRABBE^S DISEASE
  6. ALEMTUZUMAB [Suspect]
     Active Substance: ALEMTUZUMAB
     Indication: KRABBE^S DISEASE
  7. MYCOPHENOLATE MOFETIL. [Suspect]
     Active Substance: MYCOPHENOLATE MOFETIL
     Indication: IMMUNOSUPPRESSION

REACTIONS (5)
  - Cytomegalovirus viraemia [Recovering/Resolving]
  - Respiratory disorder [Recovered/Resolved]
  - Parainfluenzae virus infection [Recovering/Resolving]
  - Pyrexia [Recovered/Resolved]
  - Stenotrophomonas infection [Recovered/Resolved]
